FAERS Safety Report 8295533 (Version 3)
Quarter: 2014Q3

REPORT INFORMATION
  Report Type: Spontaneous
  Country: US (occurrence: US)
  Receive Date: 20111216
  Receipt Date: 20140908
  Transmission Date: 20150326
  Serious: Yes (Other)
  Sender: FDA-Public Use
  Company Number: US-BRISTOL-MYERS SQUIBB COMPANY-15519754

PATIENT
  Age: 25 Year
  Sex: Female
  Weight: 53.07 kg

DRUGS (42)
  1. REMERON [Concomitant]
     Active Substance: MIRTAZAPINE
     Indication: SLEEP DISORDER
  2. CEREFOLIN [Concomitant]
     Active Substance: CYANOCOBALAMIN CO-57\LEVOMEFOLATE CALCIUM\PYRIDOXINE HYDROCHLORIDE\RIBOFLAVIN
  3. WELLBUTRIN [Concomitant]
     Active Substance: BUPROPION HYDROCHLORIDE
  4. DULOXETINE HCL [Concomitant]
     Active Substance: DULOXETINE HYDROCHLORIDE
     Route: 048
  5. VITAMIN D [Concomitant]
     Active Substance: CHOLECALCIFEROL
  6. GUAIFENESIN. [Concomitant]
     Active Substance: GUAIFENESIN
  7. TYLENOL EXTRA STRENGTH [Concomitant]
     Active Substance: ACETAMINOPHEN
  8. MULTIVITAMIN [Concomitant]
     Active Substance: VITAMINS
     Dosage: 1DF:1 TAB
     Route: 048
  9. VICOPROFEN [Concomitant]
     Active Substance: HYDROCODONE BITARTRATE\IBUPROFEN
     Dosage: 1DF:7.5-200MG,TAB?ONE TAB EVERY 6-8HRS.
     Route: 048
  10. PREDNISONE. [Concomitant]
     Active Substance: PREDNISONE
  11. VICKS VAPORUB [Concomitant]
     Active Substance: CAMPHOR (SYNTHETIC)\EUCALYPTUS OIL\MENTHOL
  12. ZYPREXA [Suspect]
     Active Substance: OLANZAPINE
     Indication: BIPOLAR I DISORDER
     Dosage: HS,2.5MG,PRN.
  13. ZYPREXA [Suspect]
     Active Substance: OLANZAPINE
     Indication: BORDERLINE PERSONALITY DISORDER
     Dosage: HS,2.5MG,PRN.
  14. VICODIN [Concomitant]
     Active Substance: ACETAMINOPHEN\HYDROCODONE BITARTRATE
     Indication: DYSMENORRHOEA
  15. CLONAZEPAM. [Concomitant]
     Active Substance: CLONAZEPAM
  16. GABAPENTIN. [Concomitant]
     Active Substance: GABAPENTIN
     Indication: INSOMNIA
     Dosage: DOSE:1 TAB AT BEDTIME.ASLO TAKEN 100MG CAPS TIWCE A DAY AS NEEDED. 300MG CAPS THREE TIMES A DAY
     Route: 048
  17. CRANBERRY. [Concomitant]
     Active Substance: CRANBERRY
  18. IBUPROFEN. [Concomitant]
     Active Substance: IBUPROFEN
     Dosage: 600MG ALSO TAKEN PER 1D
     Route: 048
  19. DEPAKOTE [Concomitant]
     Active Substance: DIVALPROEX SODIUM
     Dosage: TID.DOSE:1000MG DAILY, TABS. 250MG 3TIMES A DAY.500MG ONE IN MRNG ,AND TWO IN EVERY AFTN.
     Route: 048
  20. ZANAFLEX [Concomitant]
     Active Substance: TIZANIDINE HYDROCHLORIDE
     Dosage: 1 TABS
     Route: 048
  21. BACLOFEN. [Concomitant]
     Active Substance: BACLOFEN
     Dosage: TAB
     Route: 048
  22. BACTRIM DS [Concomitant]
     Active Substance: SULFAMETHOXAZOLE\TRIMETHOPRIM
     Dosage: 1DF:1 800MG-160MG20
     Route: 048
  23. RISPERDAL [Suspect]
     Active Substance: RISPERIDONE
  24. PREVACID [Concomitant]
     Active Substance: LANSOPRAZOLE
  25. RIFAMPIN. [Concomitant]
     Active Substance: RIFAMPIN
     Dosage: 1 CAPS.
     Route: 048
  26. CYMBALTA [Concomitant]
     Active Substance: DULOXETINE HYDROCHLORIDE
     Dosage: 60MG
     Route: 048
  27. ABILIFY [Suspect]
     Active Substance: ARIPIPRAZOLE
     Indication: BIPOLAR I DISORDER
     Dosage: DOSE:5MG,Q AM.DOSE:20MG DAILY.?DOSE:25MG QD
     Route: 048
     Dates: start: 20041005, end: 20070924
  28. ARTANE [Concomitant]
     Active Substance: TRIHEXYPHENIDYL HYDROCHLORIDE
     Indication: EXTRAPYRAMIDAL DISORDER
     Dosage: TID,PRN.
  29. LOESTRIN NOS [Concomitant]
     Active Substance: ETHINYL ESTRADIOL\NORETHINDRONE ACETATE
     Dosage: 1DF: 1 TAB.1MG 20MCG
  30. VITAMIN B COMPLEX [Concomitant]
     Active Substance: CYANOCOBALAMIN\DEXPANTHENOL\NIACINAMIDE\PYRIDOXINE HYDROCHLORIDE\RIBOFLAVIN 5^-PHOSPHATE SODIUM\THIAMINE HYDROCHLORIDE\VITAMIN B COMPLEX
     Dosage: 1DF:1TAB
     Route: 048
  31. SELENIUM [Concomitant]
     Active Substance: SELENIUM
  32. MELOXICAM. [Concomitant]
     Active Substance: MELOXICAM
     Dosage: 1 TAB QTY30
     Route: 048
  33. OMEPRAZOLE. [Concomitant]
     Active Substance: OMEPRAZOLE
  34. ABILIFY [Suspect]
     Active Substance: ARIPIPRAZOLE
     Indication: BORDERLINE PERSONALITY DISORDER
     Dosage: DOSE:5MG,Q AM.DOSE:20MG DAILY.?DOSE:25MG QD
     Route: 048
     Dates: start: 20041005, end: 20070924
  35. SEROQUEL [Concomitant]
     Active Substance: QUETIAPINE FUMARATE
  36. NEURONTIN [Concomitant]
     Active Substance: GABAPENTIN
     Dosage: 1-2CAPS.DOSE:600MG, 1 TABS DAILY AT BED TIME.
     Route: 048
  37. ISONIAZID. [Concomitant]
     Active Substance: ISONIAZID
     Dosage: 1 CAPS.
     Route: 048
  38. ROBAXIN [Concomitant]
     Active Substance: METHOCARBAMOL
  39. OXYCODONE HCL [Concomitant]
     Active Substance: OXYCODONE HYDROCHLORIDE
     Dosage: 1DF: 180 (5MG) 1 TAB
     Route: 048
  40. GABAPENTIN. [Concomitant]
     Active Substance: GABAPENTIN
     Indication: ANXIETY
     Dosage: DOSE:1 TAB AT BEDTIME.ASLO TAKEN 100MG CAPS TIWCE A DAY AS NEEDED. 300MG CAPS THREE TIMES A DAY
     Route: 048
  41. BACTROBAN [Concomitant]
     Active Substance: MUPIROCIN\MUPIROCIN CALCIUM
     Dosage: 1DF: 2%
     Route: 061
  42. VITAMIN B COMPLEX [Concomitant]
     Active Substance: CYANOCOBALAMIN\DEXPANTHENOL\NIACINAMIDE\PYRIDOXINE HYDROCHLORIDE\RIBOFLAVIN 5^-PHOSPHATE SODIUM\THIAMINE HYDROCHLORIDE\VITAMIN B COMPLEX

REACTIONS (18)
  - Pain [Unknown]
  - Headache [Unknown]
  - Extrapyramidal disorder [Not Recovered/Not Resolved]
  - Anxiety [Unknown]
  - Dizziness [Unknown]
  - Pregnancy [Recovered/Resolved]
  - Vomiting [Unknown]
  - Agitation [Unknown]
  - Gastritis [Recovered/Resolved]
  - Live birth [Unknown]
  - Weight decreased [Unknown]
  - Abdominal discomfort [Unknown]
  - Poor quality sleep [Unknown]
  - Photosensitivity reaction [Unknown]
  - Malaise [Unknown]
  - Dysphagia [Unknown]
  - Suicidal ideation [Unknown]
  - Vision blurred [Recovering/Resolving]

NARRATIVE: CASE EVENT DATE: 200412
